FAERS Safety Report 14408606 (Version 1)
Quarter: 2018Q1

REPORT INFORMATION
  Report Type: Report from Study
  Country: None (occurrence: US)
  Receive Date: 20180118
  Receipt Date: 20180118
  Transmission Date: 20180509
  Serious: Yes (Other)
  Sender: FDA-Public Use
  Company Number: US-ABBVIE-16P-163-1666673-00

PATIENT
  Age: 69 Year
  Sex: Male

DRUGS (3)
  1. RIBAVIRIN. [Suspect]
     Active Substance: RIBAVIRIN
     Route: 048
     Dates: start: 20150528, end: 20150824
  2. VIEKIRA PAK [Suspect]
     Active Substance: DASABUVIR\OMBITASVIR\PARITAPREVIR\RITONAVIR
     Indication: CHRONIC HEPATITIS C
     Route: 048
     Dates: start: 20150311, end: 20150824
  3. RIBAVIRIN. [Suspect]
     Active Substance: RIBAVIRIN
     Indication: CHRONIC HEPATITIS C
     Route: 048
     Dates: start: 20150311, end: 20150430

REACTIONS (16)
  - Neuropathy peripheral [Unknown]
  - Nausea [Unknown]
  - Jaundice [Unknown]
  - Myoclonus [Unknown]
  - Abdominal pain [Unknown]
  - Insomnia [Unknown]
  - Thinking abnormal [Unknown]
  - Hyperhidrosis [Unknown]
  - Hepatocellular carcinoma [Unknown]
  - Anal incontinence [Unknown]
  - Abdominal distension [Unknown]
  - Hepatic encephalopathy [Unknown]
  - Ascites [Unknown]
  - Back pain [Unknown]
  - Hypoglycaemia [Unknown]
  - Tremor [Unknown]

NARRATIVE: CASE EVENT DATE: 20150312
